FAERS Safety Report 9520957 (Version 1)
Quarter: 2013Q1

REPORT INFORMATION
  Report Type: Spontaneous
  Country: US (occurrence: None)
  Receive Date: 20130305
  Receipt Date: 20130305
  Transmission Date: 20140127
  Serious: Yes (Hospitalization, Other)
  Sender: FDA-Public Use
  Company Number: 163-21880-12012524

PATIENT
  Sex: Female
  Weight: 90.72 kg

DRUGS (23)
  1. REVLIMID [Suspect]
     Indication: PLASMA CELL MYELOMA
     Dosage: 10 MG, DAILY X 21 DAYS, PO
     Route: 048
     Dates: start: 20120130, end: 20120219
  2. ATENOLOL (ATENOLOL) (UNKNOWN) [Concomitant]
  3. CALCIUM (CALCIUM) (UNKNOWN) [Concomitant]
  4. MAGNESIUM (MAGNESIUM) (UNKNOWN) [Concomitant]
  5. ZINC (ZINC) (UNKNOWN) [Concomitant]
  6. DETROL (TOLTERODINE L-TARTRATE) (UNKNOWN) [Concomitant]
  7. ECOTRIN (ACETYLSALICYLIC ACID) (UNKNOWN) [Concomitant]
  8. LASIX (FUROSEMIDE) (UNKNOWN) [Concomitant]
  9. LEVOTHYROXIN (LEVOTHYROXIN SODIUM) (UNKNOWN) [Concomitant]
  10. LIPITOR (ATROVASTATIN) (UNKNOWN) [Concomitant]
  11. MULTIVITIAMINS (MULTIVITAMINS) (UNKNOWN) [Concomitant]
  12. POTASSIUM (POTASSIUM) (UNKNOWN) [Concomitant]
  13. PREVACID (LANSOPRAZOLE) (UNKNOWN) [Concomitant]
  14. PRILOSEC (OMEPRAZOLE) (UNKNOWN) [Concomitant]
  15. TYLENOL (PARACETAMOL) (UNKNOWN) [Concomitant]
  16. VITAMIN B-12 (CYANOCOBALAMIN) (UNKNOWN) [Concomitant]
  17. VITAMIN D (ERGOCALCIFEROL) (UNKNOWN) [Concomitant]
  18. VITAMIN E (TOCOPHEROL) (UNKNOWN) [Concomitant]
  19. ZOLOFT (SERTRALINE HYDROCHLORIDE) (UNKNOWN) [Concomitant]
  20. PEPCID (FAMOTIDINE) (UNKNOWN) [Concomitant]
  21. LATROL (CETIRIZINE HYDROCHLORIDE) (UNKNOWN) [Concomitant]
  22. K-LOR (POTASSIUM CHLORIDE) (UNKNOWN) [Concomitant]
  23. VITAMIN C [Concomitant]

REACTIONS (2)
  - Haemoglobin decreased [None]
  - Red blood cell count decreased [None]
